FAERS Safety Report 6013940-7 (Version None)
Quarter: 2008Q4

REPORT INFORMATION
  Report Type: 
  Country: None (occurrence: None)
  Receive Date: 20081219
  Receipt Date: 20081204
  Transmission Date: 20090506
  Serious: Yes (Congenital Anomaly)
  Sender: FDA-Public Use
  Company Number: TW-MERCK-0812USA03796B1

PATIENT

DRUGS (1)
  1. PROSCAR [Suspect]
     Route: 064
     Dates: start: 20060101, end: 20081201

REACTIONS (2)
  - CYTOGENETIC ABNORMALITY [None]
  - LIMB DEFORMITY [None]
